FAERS Safety Report 16481969 (Version 1)
Quarter: 2019Q2

REPORT INFORMATION
  Report Type: Spontaneous
  Country: IS (occurrence: IS)
  Receive Date: 20190627
  Receipt Date: 20190627
  Transmission Date: 20190711
  Serious: Yes (Other)
  Sender: FDA-Public Use
  Company Number: IS-SA-2019SA166736

PATIENT
  Age: 78 Year
  Sex: Female
  Weight: 60 kg

DRUGS (2)
  1. MULTAQ [Suspect]
     Active Substance: DRONEDARONE
     Indication: ATRIAL FIBRILLATION
     Dosage: 400 MG, Q12H (1 TABLET IN THE MORNING AND 1 TABLET IN THE MIDDLE OF THE DAY)
     Dates: start: 20180614, end: 201904
  2. MULTAQ [Suspect]
     Active Substance: DRONEDARONE
     Indication: PALPITATIONS

REACTIONS (4)
  - Blood creatine increased [Recovering/Resolving]
  - Renal failure [Recovering/Resolving]
  - Glomerular filtration rate decreased [Recovering/Resolving]
  - Taste disorder [Unknown]

NARRATIVE: CASE EVENT DATE: 201809
